FAERS Safety Report 22142786 (Version 1)
Quarter: 2023Q1

REPORT INFORMATION
  Report Type: Report from Study
  Country: US (occurrence: US)
  Receive Date: 20230327
  Receipt Date: 20230327
  Transmission Date: 20230417
  Serious: Yes (Hospitalization)
  Sender: FDA-Public Use
  Company Number: US-BAYER-2023A036622

PATIENT
  Age: 44 Year
  Sex: Female
  Weight: 70.748 kg

DRUGS (8)
  1. ADEMPAS [Suspect]
     Active Substance: RIOCIGUAT
     Indication: Pulmonary arterial hypertension
     Dosage: UNK
     Dates: start: 20210421
  2. ADEMPAS [Suspect]
     Active Substance: RIOCIGUAT
     Indication: Pulmonary arterial hypertension
     Dosage: 1.5 MG, TID
     Route: 048
  3. LETAIRIS [Concomitant]
     Active Substance: AMBRISENTAN
  4. TREPROSTINIL [Concomitant]
     Active Substance: TREPROSTINIL
  5. AMBRISENTAN [Concomitant]
     Active Substance: AMBRISENTAN
  6. WARFARIN [Concomitant]
     Active Substance: WARFARIN
  7. TYVASO [Concomitant]
     Active Substance: TREPROSTINIL
  8. ORENITRAM [Concomitant]
     Active Substance: TREPROSTINIL

REACTIONS (1)
  - Arrhythmia [None]
